FAERS Safety Report 7150619-2 (Version None)
Quarter: 2010Q4

REPORT INFORMATION
  Report Type: 
  Country: None (occurrence: None)
  Receive Date: 20101124
  Receipt Date: 20101112
  Transmission Date: 20110411
  Serious: Yes (Hospitalization)
  Sender: FDA-Public Use
  Company Number: 2010EU006053

PATIENT
  Sex: Male

DRUGS (2)
  1. TACROLIMUS [Suspect]
     Indication: DERMATITIS ATOPIC
     Dosage: 1% UNKNOWN/D
     Dates: start: 20100101
  2. CORTICOSTEROIDS [Concomitant]

REACTIONS (1)
  - UROGRAM [None]
